FAERS Safety Report 8092638-8 (Version None)
Quarter: 2012Q1

REPORT INFORMATION
  Report Type: 
  Country: None (occurrence: None)
  Receive Date: 20120131
  Receipt Date: 20120123
  Transmission Date: 20120608
  Serious: Yes (Hospitalization)
  Sender: FDA-Public Use
  Company Number: US-BAYER-200942564NA

PATIENT
  Age: 41 Year
  Sex: Female
  Weight: 58.957 kg

DRUGS (4)
  1. YASMIN [Suspect]
     Dosage: UNK
     Dates: start: 20020101
  2. AMBIEN [Concomitant]
     Indication: INSOMNIA
     Dosage: UNK
     Route: 048
     Dates: start: 20000101
  3. YASMIN [Suspect]
     Indication: CONTRACEPTION
     Dates: start: 20070501, end: 20071212
  4. YASMIN [Suspect]
     Dosage: UNK
     Dates: start: 20050901, end: 20060301

REACTIONS (3)
  - PULMONARY EMBOLISM [None]
  - PULMONARY FIBROSIS [None]
  - THROMBOSIS [None]
